FAERS Safety Report 4506271-5 (Version None)
Quarter: 2004Q4

REPORT INFORMATION
  Report Type: 
  Country: None (occurrence: None)
  Receive Date: 20041025
  Receipt Date: 20040323
  Transmission Date: 20050328
  Serious: Yes (Hospitalization)
  Sender: FDA-Public Use
  Company Number: US-JNJFOC-20040100057

PATIENT
  Age: 21 Year
  Sex: Female

DRUGS (18)
  1. REMICADE [Suspect]
     Indication: CROHN'S DISEASE
     Dosage: 5 MG/KG, 2 IN
     Dates: start: 20031101, end: 20031229
  2. PREDNISONE [Suspect]
     Indication: CROHN'S DISEASE
     Dosage: 40 MG/DAY
  3. EFFEXOR [Concomitant]
  4. VANCOMYCIN [Concomitant]
  5. PROTONIX [Concomitant]
  6. AMITRIPTYLINE HCL [Concomitant]
  7. ZYPREXA [Concomitant]
  8. REGLAN [Concomitant]
  9. XANAX [Concomitant]
  10. METHADONE (METHADONE) [Concomitant]
  11. CLONAZEPAM [Concomitant]
  12. BENADRYL [Concomitant]
  13. REMERON [Concomitant]
  14. ZOFRAN [Concomitant]
  15. TRAMADOL HCL [Concomitant]
  16. ASACOL [Concomitant]
  17. ZELNORM [Concomitant]
  18. DEXAMETHASONE [Concomitant]

REACTIONS (4)
  - ARTHRALGIA [None]
  - CONDITION AGGRAVATED [None]
  - CROHN'S DISEASE [None]
  - GENERALISED OEDEMA [None]
